FAERS Safety Report 4843583-X (Version None)
Quarter: 2005Q4

REPORT INFORMATION
  Report Type: 
  Country: None (occurrence: None)
  Receive Date: 20051202
  Receipt Date: 20051128
  Transmission Date: 20060501
  Serious: Yes (Death)
  Sender: FDA-Public Use
  Company Number: GB-BOEHRINGER INGELHEIM PHARMACEUTICALS, INC.-2005-UK-02472UK

PATIENT
  Sex: Female

DRUGS (4)
  1. IPRATROPIUM BROMIDE [Suspect]
     Route: 055
  2. SALBUTAMOL [Suspect]
     Route: 055
  3. PREDNISOLONE [Suspect]
     Route: 048
  4. FOSAMAX [Suspect]
     Route: 065

REACTIONS (2)
  - CARDIAC FAILURE [None]
  - INFECTIVE EXACERBATION OF CHRONIC OBSTRUCTIVE AIRWAYS DISEASE [None]
